FAERS Safety Report 24636003 (Version 1)
Quarter: 2024Q4

REPORT INFORMATION
  Report Type: Spontaneous
  Country: GB (occurrence: GB)
  Receive Date: 20241119
  Receipt Date: 20241119
  Transmission Date: 20250115
  Serious: Yes (Other)
  Sender: HETERO
  Company Number: None

PATIENT
  Sex: Female

DRUGS (1)
  1. ARIPIPRAZOLE [Suspect]
     Active Substance: ARIPIPRAZOLE
     Indication: Product used for unknown indication
     Dosage: UNK
     Route: 065

REACTIONS (5)
  - Loss of consciousness [Unknown]
  - Orthostatic hypotension [Recovered/Resolved]
  - Syncope [Unknown]
  - Head injury [Unknown]
  - Skin laceration [Unknown]

NARRATIVE: CASE EVENT DATE: 20241109
